FAERS Safety Report 5562982-4 (Version None)
Quarter: 2007Q4

REPORT INFORMATION
  Report Type: 
  Country: None (occurrence: None)
  Receive Date: 20071217
  Receipt Date: 20071203
  Transmission Date: 20080405
  Serious: Yes (Disabling)
  Sender: FDA-Public Use
  Company Number: CA-SP-2007-00931

PATIENT
  Age: 42 Year
  Sex: Female

DRUGS (3)
  1. IMOGAM RABIES [Suspect]
     Indication: ACCIDENTAL EXPOSURE
     Route: 030
     Dates: start: 20070316
  2. IMOGAM RABIES [Suspect]
     Route: 030
     Dates: start: 20070316
  3. INACTIVATED HUMAN RABIES VACCINE MERIEUX [Suspect]
     Indication: ACCIDENTAL EXPOSURE
     Route: 030
     Dates: start: 20070323

REACTIONS (14)
  - AGEUSIA [None]
  - ANOSMIA [None]
  - ARTHRALGIA [None]
  - BRAIN MASS [None]
  - FATIGUE [None]
  - HEADACHE [None]
  - IRRITABILITY [None]
  - MUSCULOSKELETAL PAIN [None]
  - NASAL CONGESTION [None]
  - NAUSEA [None]
  - SERUM SICKNESS [None]
  - SKIN DISORDER [None]
  - TENDON CALCIFICATION [None]
  - URTICARIA [None]
